FAERS Safety Report 24535903 (Version 3)
Quarter: 2025Q2

REPORT INFORMATION
  Report Type: Spontaneous
  Country: JP (occurrence: JP)
  Receive Date: 20241022
  Receipt Date: 20250411
  Transmission Date: 20250717
  Serious: Yes (Death, Hospitalization)
  Sender: SYMOGEN
  Company Number: JP-PARTNER THERAPEUTICS-2024PTX04061

PATIENT
  Age: 85 Year
  Sex: Male
  Weight: 45.306 kg

DRUGS (13)
  1. SARGRAMOSTIM [Suspect]
     Active Substance: SARGRAMOSTIM
     Indication: Alveolar proteinosis
     Dosage: 125 ?G, 12 HR
     Dates: start: 20240821, end: 20240925
  2. ESOMEPRAZOLE [Concomitant]
     Active Substance: ESOMEPRAZOLE
     Route: 048
  3. UNISIA [Concomitant]
     Active Substance: AMLODIPINE BESYLATE\CANDESARTAN CILEXETIL
     Route: 048
  4. URSODIOL [Concomitant]
     Active Substance: URSODIOL
     Route: 048
  5. REBAMIPIDE [Concomitant]
     Active Substance: REBAMIPIDE
     Route: 048
  6. TANDOSPIRONE CITRATE [Concomitant]
     Active Substance: TANDOSPIRONE CITRATE
     Route: 048
  7. TAMSULOSIN HYDROCHLORIDE [Concomitant]
     Active Substance: TAMSULOSIN HYDROCHLORIDE
     Route: 048
  8. PANTETHINE [Concomitant]
     Active Substance: PANTETHINE
     Route: 048
  9. MAGNESIUM OXIDE [Concomitant]
     Active Substance: MAGNESIUM OXIDE
     Route: 048
  10. ASVERIN (RIBAVIRIN) [Concomitant]
     Active Substance: RIBAVIRIN
     Indication: Alveolar proteinosis
     Route: 048
  11. LOXOPROFEN [Concomitant]
     Active Substance: LOXOPROFEN
     Route: 048
  12. LOXOPROFEN [Concomitant]
     Active Substance: LOXOPROFEN
  13. BIO-THREE [Concomitant]
     Active Substance: HERBALS
     Route: 048

REACTIONS (9)
  - Hypercapnia [Recovered/Resolved]
  - Condition aggravated [Fatal]
  - Circulatory collapse [Recovered/Resolved]
  - Gastrointestinal haemorrhage [Recovered/Resolved]
  - Anaemia [Recovered/Resolved]
  - Device related infection [Recovered/Resolved]
  - Pneumonia [Recovered/Resolved]
  - Malnutrition [Not Recovered/Not Resolved]
  - Respiratory failure [Not Recovered/Not Resolved]

NARRATIVE: CASE EVENT DATE: 20240924
